FAERS Safety Report 11350290 (Version 1)
Quarter: 2015Q3

REPORT INFORMATION
  Report Type: Spontaneous
  Country: US (occurrence: None)
  Receive Date: 20150806
  Receipt Date: 20150806
  Transmission Date: 20151125
  Serious: No
  Sender: FDA-Public Use
  Company Number: None

PATIENT
  Age: 60 Year
  Sex: Male
  Weight: 68.04 kg

DRUGS (10)
  1. TRAZODONE 150MG [Concomitant]
  2. CLONIDINE .2MG [Concomitant]
  3. OXYCODONE 15MG ZYGENERICS [Concomitant]
     Active Substance: OXYCODONE
  4. LYRICA [Concomitant]
     Active Substance: PREGABALIN
  5. LEVOTHYROXINE 50MG [Concomitant]
  6. AMLODIPINE/BENAZEPRIL [Concomitant]
     Active Substance: AMLODIPINE BESYLATE\BENAZEPRIL HYDROCHLORIDE
  7. SPIRIVA [Concomitant]
     Active Substance: TIOTROPIUM BROMIDE MONOHYDRATE
  8. MOMETASONE FUROATE. [Suspect]
     Active Substance: MOMETASONE FUROATE
     Indication: CHRONIC OBSTRUCTIVE PULMONARY DISEASE
     Dosage: FEW TIMES, 2 PUFFS 2X DAY
     Route: 048
  9. IBUPROFEN 800MG [Concomitant]
     Active Substance: IBUPROFEN
  10. PRO-AIR INHALER 90MCG [Concomitant]

REACTIONS (1)
  - Candida infection [None]

NARRATIVE: CASE EVENT DATE: 20150618
